FAERS Safety Report 7491478-8 (Version None)
Quarter: 2011Q1

REPORT INFORMATION
  Report Type: 
  Country: None (occurrence: None)
  Receive Date: 20110318
  Receipt Date: 20100204
  Transmission Date: 20110831
  Serious: Yes (Other)
  Sender: FDA-Public Use
  Company Number: 1-0210-05

PATIENT
  Sex: Female

DRUGS (2)
  1. DERMA-SMOOTHE/FS [Suspect]
     Indication: PSORIASIS
     Dosage: TOPICAL
     Route: 061
  2. METOPROLOL SUCCINATE [Concomitant]

REACTIONS (1)
  - ALOPECIA [None]
